FAERS Safety Report 12066857 (Version 3)
Quarter: 2016Q1

REPORT INFORMATION
  Report Type: Report from Study
  Country: BR (occurrence: BR)
  Receive Date: 20160211
  Receipt Date: 20160314
  Transmission Date: 20160526
  Serious: Yes (Other)
  Sender: FDA-Public Use
  Company Number: PHHY2016BR017795

PATIENT
  Sex: Female
  Weight: 56 kg

DRUGS (2)
  1. SIMVASTATIN. [Concomitant]
     Active Substance: SIMVASTATIN
     Indication: BLOOD CHOLESTEROL INCREASED
     Dosage: 20 MG, QD
     Route: 048
  2. ACLASTA [Suspect]
     Active Substance: ZOLEDRONIC ACID
     Indication: OSTEOPOROSIS
     Dosage: 5 MG,Q12MO
     Route: 042
     Dates: start: 2010

REACTIONS (4)
  - Skin cancer [Recovering/Resolving]
  - Hypertension [Recovering/Resolving]
  - Pain [Not Recovered/Not Resolved]
  - Hypersensitivity [Unknown]
